FAERS Safety Report 7346760-1 (Version None)
Quarter: 2011Q1

REPORT INFORMATION
  Report Type: 
  Country: None (occurrence: None)
  Receive Date: 20110311
  Receipt Date: 20110307
  Transmission Date: 20110831
  Serious: Yes (Death, Life-Threatening)
  Sender: FDA-Public Use
  Company Number: JP-CELGENEUS-087-21880-11030842

PATIENT
  Sex: Female

DRUGS (6)
  1. TAKEPRON [Concomitant]
     Indication: PROPHYLAXIS
     Dosage: 15 MILLIGRAM
     Route: 048
     Dates: start: 20110207, end: 20110304
  2. KELNAC [Concomitant]
     Indication: PROPHYLAXIS
     Dosage: 240 MILLIGRAM
     Route: 048
     Dates: start: 20110207, end: 20110304
  3. LENADEX [Suspect]
     Indication: MULTIPLE MYELOMA
     Dosage: 4 MILLIGRAM
     Route: 048
     Dates: start: 20110207, end: 20110207
  4. LENADEX [Suspect]
     Dosage: 20 MILLIGRAM
     Route: 048
     Dates: start: 20110221, end: 20110221
  5. REVLIMID [Suspect]
     Indication: MULTIPLE MYELOMA
     Dosage: 5 MILLIGRAM
     Route: 048
     Dates: start: 20110207
  6. LENADEX [Suspect]
     Dosage: 12 MILLIGRAM
     Route: 048
     Dates: start: 20110214, end: 20110214

REACTIONS (2)
  - SEPTIC SHOCK [None]
  - GRANULOCYTOPENIA [None]
